FAERS Safety Report 13015203 (Version 2)
Quarter: 2017Q1

REPORT INFORMATION
  Report Type: Report from Study
  Country: US (occurrence: US)
  Receive Date: 20161211
  Receipt Date: 20170103
  Transmission Date: 20170428
  Serious: Yes (Hospitalization, Other)
  Sender: FDA-Public Use
  Company Number: US-BRISTOL-MYERS SQUIBB COMPANY-BMS-2016-103519

PATIENT
  Age: 40 Year
  Sex: Female

DRUGS (2)
  1. IPILIMUMAB [Suspect]
     Active Substance: IPILIMUMAB
     Indication: MALIGNANT MELANOMA
     Route: 042
  2. NIVOLUMAB [Suspect]
     Active Substance: NIVOLUMAB
     Indication: MALIGNANT MELANOMA
     Route: 042

REACTIONS (17)
  - Decreased appetite [Unknown]
  - Rash macular [Recovered/Resolved]
  - Pleural effusion [Unknown]
  - Insomnia [Unknown]
  - Paraesthesia [Unknown]
  - Scar [Recovered/Resolved]
  - Conjunctivitis [Unknown]
  - Lung operation [Unknown]
  - Headache [Unknown]
  - Dyspnoea [Not Recovered/Not Resolved]
  - Hypoaesthesia [Recovered/Resolved]
  - Nausea [Unknown]
  - Autoimmune colitis [Unknown]
  - Rash pruritic [Recovering/Resolving]
  - Thoracostomy [Unknown]
  - Pyrexia [Unknown]
  - Eye infection [Unknown]

NARRATIVE: CASE EVENT DATE: 20161216
